FAERS Safety Report 12607649 (Version 2)
Quarter: 2020Q3

REPORT INFORMATION
  Report Type: Report from Study
  Country: FR (occurrence: FR)
  Receive Date: 20160729
  Receipt Date: 20160803
  Transmission Date: 20201104
  Serious: Yes (Hospitalization)
  Sender: FDA-Public Use
  Company Number: FR-JNJFOC-20160722374

PATIENT
  Age: 69 Year
  Sex: Male
  Weight: 60 kg

DRUGS (4)
  1. DARATUMUMAB [Suspect]
     Active Substance: DARATUMUMAB
     Route: 042
  2. DARATUMUMAB [Suspect]
     Active Substance: DARATUMUMAB
     Indication: PLASMA CELL MYELOMA
     Dosage: MEDICINE KIT NUMBER: 4371676
     Route: 042
     Dates: start: 20160721
  3. LENALIDOMIDE [Suspect]
     Active Substance: LENALIDOMIDE
     Indication: PLASMA CELL MYELOMA
     Route: 065
  4. DEXAMETHASONE. [Suspect]
     Active Substance: DEXAMETHASONE
     Indication: PLASMA CELL MYELOMA
     Route: 048
     Dates: start: 20160721

REACTIONS (3)
  - Cardiac murmur [Unknown]
  - Dyspnoea exertional [Unknown]
  - Pneumonia [Unknown]

NARRATIVE: CASE EVENT DATE: 20160721
